FAERS Safety Report 25022614 (Version 1)
Quarter: 2025Q1

REPORT INFORMATION
  Report Type: Spontaneous
  Country: CA (occurrence: CA)
  Receive Date: 20250228
  Receipt Date: 20250228
  Transmission Date: 20250409
  Serious: Yes (Death, Life-Threatening, Hospitalization, Disabling, Congenital Anomaly, Other)
  Sender: SANDOZ
  Company Number: CA-SANDOZ-SDZ2024CA107725

PATIENT
  Age: 40 Year
  Sex: Female
  Weight: 96 kg

DRUGS (470)
  1. ADALIMUMAB [Suspect]
     Active Substance: ADALIMUMAB
     Dosage: 40 MG, Q2W (1 EVERY 2 WEEKS)
     Route: 041
  2. ADALIMUMAB [Suspect]
     Active Substance: ADALIMUMAB
     Indication: Rheumatoid arthritis
     Dosage: 40 MG, Q2W (1 EVERY 2 WEEKS)
     Route: 058
  3. ADALIMUMAB [Suspect]
     Active Substance: ADALIMUMAB
     Route: 058
  4. ADALIMUMAB [Suspect]
     Active Substance: ADALIMUMAB
     Route: 058
  5. ADALIMUMAB [Suspect]
     Active Substance: ADALIMUMAB
     Route: 041
  6. ADALIMUMAB [Suspect]
     Active Substance: ADALIMUMAB
     Route: 058
  7. ALENDRONATE SODIUM [Suspect]
     Active Substance: ALENDRONATE SODIUM
     Indication: Product used for unknown indication
     Route: 065
  8. ALENDRONATE SODIUM [Suspect]
     Active Substance: ALENDRONATE SODIUM
     Indication: Rheumatoid arthritis
  9. ALENDRONIC ACID [Suspect]
     Active Substance: ALENDRONIC ACID
     Route: 016
  10. ALENDRONIC ACID [Suspect]
     Active Substance: ALENDRONIC ACID
     Indication: Rheumatoid arthritis
     Route: 048
  11. ALENDRONIC ACID [Suspect]
     Active Substance: ALENDRONIC ACID
     Route: 048
  12. ALENDRONIC ACID [Suspect]
     Active Substance: ALENDRONIC ACID
     Route: 065
  13. APREMILAST [Suspect]
     Active Substance: APREMILAST
     Indication: Rheumatoid arthritis
     Route: 065
  14. ACETAMINOPHEN [Suspect]
     Active Substance: ACETAMINOPHEN
     Route: 065
  15. ACETAMINOPHEN [Suspect]
     Active Substance: ACETAMINOPHEN
     Route: 065
  16. ACETAMINOPHEN [Suspect]
     Active Substance: ACETAMINOPHEN
     Indication: Product used for unknown indication
     Route: 065
  17. ACETAMINOPHEN [Suspect]
     Active Substance: ACETAMINOPHEN
     Indication: Rheumatoid arthritis
     Route: 065
  18. ACETAMINOPHEN AND CODEINE [Suspect]
     Active Substance: ACETAMINOPHEN\CODEINE PHOSPHATE
     Indication: Product used for unknown indication
     Route: 065
  19. ACETAMINOPHEN AND CODEINE [Suspect]
     Active Substance: ACETAMINOPHEN\CODEINE PHOSPHATE
     Indication: Rheumatoid arthritis
  20. ACTEMRA [Suspect]
     Active Substance: TOCILIZUMAB
     Indication: Rheumatoid arthritis
     Route: 041
  21. ACTEMRA [Suspect]
     Active Substance: TOCILIZUMAB
     Route: 065
  22. ACTEMRA [Suspect]
     Active Substance: TOCILIZUMAB
     Route: 041
  23. ACTEMRA [Suspect]
     Active Substance: TOCILIZUMAB
     Route: 041
  24. ACTEMRA [Suspect]
     Active Substance: TOCILIZUMAB
     Route: 058
  25. ACTEMRA [Suspect]
     Active Substance: TOCILIZUMAB
     Route: 041
  26. ACTEMRA [Suspect]
     Active Substance: TOCILIZUMAB
     Route: 065
  27. ACTEMRA [Suspect]
     Active Substance: TOCILIZUMAB
     Route: 058
  28. ACTEMRA [Suspect]
     Active Substance: TOCILIZUMAB
     Route: 040
  29. ACTEMRA [Suspect]
     Active Substance: TOCILIZUMAB
     Route: 058
  30. ACTEMRA [Suspect]
     Active Substance: TOCILIZUMAB
     Route: 040
  31. ACTEMRA [Suspect]
     Active Substance: TOCILIZUMAB
     Route: 040
  32. ACTEMRA [Suspect]
     Active Substance: TOCILIZUMAB
     Route: 058
  33. ACTEMRA [Suspect]
     Active Substance: TOCILIZUMAB
     Route: 040
  34. ACTEMRA [Suspect]
     Active Substance: TOCILIZUMAB
     Route: 058
  35. ACTEMRA [Suspect]
     Active Substance: TOCILIZUMAB
     Route: 065
  36. ACTEMRA [Suspect]
     Active Substance: TOCILIZUMAB
     Route: 016
  37. ACTEMRA [Suspect]
     Active Substance: TOCILIZUMAB
     Route: 040
  38. ACTEMRA [Suspect]
     Active Substance: TOCILIZUMAB
     Route: 065
  39. ACTEMRA [Suspect]
     Active Substance: TOCILIZUMAB
     Route: 041
  40. ACTEMRA [Suspect]
     Active Substance: TOCILIZUMAB
     Route: 016
  41. ACTEMRA [Suspect]
     Active Substance: TOCILIZUMAB
     Route: 040
  42. ACTEMRA [Suspect]
     Active Substance: TOCILIZUMAB
     Route: 040
  43. ACTEMRA [Suspect]
     Active Substance: TOCILIZUMAB
     Route: 040
  44. ACTEMRA [Suspect]
     Active Substance: TOCILIZUMAB
     Route: 041
  45. ACTEMRA [Suspect]
     Active Substance: TOCILIZUMAB
     Route: 041
  46. ACTEMRA [Suspect]
     Active Substance: TOCILIZUMAB
     Route: 050
  47. ACTEMRA [Suspect]
     Active Substance: TOCILIZUMAB
     Indication: Product used for unknown indication
     Route: 058
  48. ACTEMRA [Suspect]
     Active Substance: TOCILIZUMAB
     Route: 058
  49. ACTEMRA [Suspect]
     Active Substance: TOCILIZUMAB
     Route: 058
  50. ACTEMRA [Suspect]
     Active Substance: TOCILIZUMAB
     Route: 061
  51. ACTEMRA [Suspect]
     Active Substance: TOCILIZUMAB
     Route: 065
  52. ACTEMRA [Suspect]
     Active Substance: TOCILIZUMAB
     Route: 065
  53. ACTEMRA [Suspect]
     Active Substance: TOCILIZUMAB
     Route: 041
  54. AIMOVIG [Suspect]
     Active Substance: ERENUMAB-AOOE
     Indication: Migraine
     Route: 065
  55. AIMOVIG [Suspect]
     Active Substance: ERENUMAB-AOOE
     Indication: Product used for unknown indication
     Route: 065
  56. AIMOVIG [Suspect]
     Active Substance: ERENUMAB-AOOE
     Route: 065
  57. AIMOVIG [Suspect]
     Active Substance: ERENUMAB-AOOE
     Route: 065
  58. DICLOFENAC POTASSIUM [Suspect]
     Active Substance: DICLOFENAC POTASSIUM
     Indication: Product used for unknown indication
     Route: 065
  59. DICLOFENAC POTASSIUM [Suspect]
     Active Substance: DICLOFENAC POTASSIUM
     Indication: Rheumatoid arthritis
  60. LEFLUNOMIDE [Suspect]
     Active Substance: LEFLUNOMIDE
     Route: 065
  61. LEFLUNOMIDE [Suspect]
     Active Substance: LEFLUNOMIDE
     Indication: Rheumatoid arthritis
     Route: 048
  62. LEFLUNOMIDE [Suspect]
     Active Substance: LEFLUNOMIDE
     Route: 065
  63. LEFLUNOMIDE [Suspect]
     Active Substance: LEFLUNOMIDE
     Dosage: 20 MG, QD
     Route: 065
  64. LEFLUNOMIDE [Suspect]
     Active Substance: LEFLUNOMIDE
     Dosage: 20 MG, BID
     Route: 065
  65. LEFLUNOMIDE [Suspect]
     Active Substance: LEFLUNOMIDE
     Route: 048
  66. LEFLUNOMIDE [Suspect]
     Active Substance: LEFLUNOMIDE
     Route: 065
  67. LEFLUNOMIDE [Suspect]
     Active Substance: LEFLUNOMIDE
     Route: 065
  68. LEFLUNOMIDE [Suspect]
     Active Substance: LEFLUNOMIDE
     Route: 065
  69. LEFLUNOMIDE [Suspect]
     Active Substance: LEFLUNOMIDE
     Route: 065
  70. LEFLUNOMIDE [Suspect]
     Active Substance: LEFLUNOMIDE
     Route: 065
  71. PREDNISONE [Suspect]
     Active Substance: PREDNISONE
     Route: 048
  72. PREDNISONE [Suspect]
     Active Substance: PREDNISONE
     Route: 065
  73. PREDNISONE [Suspect]
     Active Substance: PREDNISONE
     Indication: Rheumatoid arthritis
     Route: 048
  74. PREDNISONE [Suspect]
     Active Substance: PREDNISONE
     Dosage: 20 MG, QD
     Route: 048
  75. PREDNISONE [Suspect]
     Active Substance: PREDNISONE
     Route: 048
  76. PREDNISONE [Suspect]
     Active Substance: PREDNISONE
     Route: 065
  77. PREDNISONE [Suspect]
     Active Substance: PREDNISONE
     Dosage: 5 MG, QD
     Route: 048
  78. PREDNISONE [Suspect]
     Active Substance: PREDNISONE
     Route: 048
  79. PREDNISONE [Suspect]
     Active Substance: PREDNISONE
     Route: 048
  80. ARAVA [Suspect]
     Active Substance: LEFLUNOMIDE
     Indication: Rheumatoid arthritis
     Dosage: 20 MG, QD
     Route: 048
  81. ARAVA [Suspect]
     Active Substance: LEFLUNOMIDE
     Route: 048
  82. ARAVA [Suspect]
     Active Substance: LEFLUNOMIDE
     Route: 048
  83. ARAVA [Suspect]
     Active Substance: LEFLUNOMIDE
     Route: 065
  84. ASCORBIC ACID\CALCIUM [Suspect]
     Active Substance: ASCORBIC ACID\CALCIUM
     Indication: Product used for unknown indication
     Route: 065
  85. ATOMOXETINE [Suspect]
     Active Substance: ATOMOXETINE
     Dosage: 1 DF, QD
     Route: 065
  86. ATOMOXETINE [Suspect]
     Active Substance: ATOMOXETINE
     Dosage: 1 DF, QD
     Route: 065
  87. ATOMOXETINE [Suspect]
     Active Substance: ATOMOXETINE
     Dosage: 1 DF, BID
     Route: 065
  88. ATOMOXETINE [Suspect]
     Active Substance: ATOMOXETINE
     Dosage: 1 DF, BID
     Route: 065
  89. ATOMOXETINE [Suspect]
     Active Substance: ATOMOXETINE
     Indication: Migraine
     Route: 065
  90. ATOMOXETINE [Suspect]
     Active Substance: ATOMOXETINE
     Route: 065
  91. BERINERT [Suspect]
     Active Substance: HUMAN C1-ESTERASE INHIBITOR
     Indication: Product used for unknown indication
     Route: 065
  92. BERINERT [Suspect]
     Active Substance: HUMAN C1-ESTERASE INHIBITOR
     Indication: Rheumatoid arthritis
  93. BOTULINUM TOXIN TYPE A [Suspect]
     Active Substance: BOTULINUM TOXIN TYPE A
     Indication: Product used for unknown indication
     Route: 065
  94. BUTRANS [Suspect]
     Active Substance: BUPRENORPHINE
     Indication: Product used for unknown indication
     Route: 065
  95. BUTRANS [Suspect]
     Active Substance: BUPRENORPHINE
     Route: 065
  96. BUTRANS [Suspect]
     Active Substance: BUPRENORPHINE
     Route: 065
  97. CANDESARTAN [Suspect]
     Active Substance: CANDESARTAN
     Indication: Migraine
     Route: 048
  98. CANDESARTAN [Suspect]
     Active Substance: CANDESARTAN
     Indication: Product used for unknown indication
     Route: 065
  99. CANDESARTAN [Suspect]
     Active Substance: CANDESARTAN
     Indication: Rheumatoid arthritis
  100. CELECOXIB [Suspect]
     Active Substance: CELECOXIB
     Dosage: 1 DF, QD
     Route: 065
  101. CELECOXIB [Suspect]
     Active Substance: CELECOXIB
     Dosage: 1 DF, QD
     Route: 065
  102. CELECOXIB [Suspect]
     Active Substance: CELECOXIB
     Indication: Product used for unknown indication
     Dosage: 2 DF, QD
     Route: 048
  103. CELECOXIB [Suspect]
     Active Substance: CELECOXIB
     Dosage: 2 DF, QD
     Route: 048
  104. CELECOXIB [Suspect]
     Active Substance: CELECOXIB
     Dosage: 2 DF, QD
     Route: 065
  105. CELECOXIB [Suspect]
     Active Substance: CELECOXIB
     Dosage: 2 DF, QD
     Route: 065
  106. CELECOXIB [Suspect]
     Active Substance: CELECOXIB
     Dosage: 2 DF, QD
     Route: 065
  107. CELECOXIB [Suspect]
     Active Substance: CELECOXIB
     Dosage: 2 DF, QD
     Route: 065
  108. CALCIUM [Suspect]
     Active Substance: CALCIUM
     Indication: Product used for unknown indication
     Route: 065
  109. CALCIUM ASCORBATE [Suspect]
     Active Substance: CALCIUM ASCORBATE
     Indication: Product used for unknown indication
     Route: 065
  110. CALCIUM ASCORBATE [Suspect]
     Active Substance: CALCIUM ASCORBATE
     Route: 065
  111. CALCIUM CITRATE [Suspect]
     Active Substance: CALCIUM CITRATE
     Indication: Product used for unknown indication
     Route: 065
  112. CALCIUM GLUBIONATE [Suspect]
     Active Substance: CALCIUM GLUBIONATE
     Indication: Product used for unknown indication
     Route: 016
  113. CALCIUM GLUBIONATE [Suspect]
     Active Substance: CALCIUM GLUBIONATE
     Route: 065
  114. CALCIUM GLUBIONATE [Suspect]
     Active Substance: CALCIUM GLUBIONATE
     Route: 065
  115. CETIRIZINE [Suspect]
     Active Substance: CETIRIZINE HYDROCHLORIDE
     Route: 065
  116. CETIRIZINE [Suspect]
     Active Substance: CETIRIZINE HYDROCHLORIDE
     Route: 065
  117. CETIRIZINE [Suspect]
     Active Substance: CETIRIZINE HYDROCHLORIDE
     Route: 048
  118. CETIRIZINE [Suspect]
     Active Substance: CETIRIZINE HYDROCHLORIDE
     Route: 048
  119. CETIRIZINE [Suspect]
     Active Substance: CETIRIZINE HYDROCHLORIDE
     Route: 065
  120. CETIRIZINE [Suspect]
     Active Substance: CETIRIZINE HYDROCHLORIDE
     Route: 065
  121. CETIRIZINE [Suspect]
     Active Substance: CETIRIZINE HYDROCHLORIDE
     Route: 065
  122. CETIRIZINE [Suspect]
     Active Substance: CETIRIZINE HYDROCHLORIDE
     Route: 065
  123. CETIRIZINE [Suspect]
     Active Substance: CETIRIZINE HYDROCHLORIDE
     Indication: Rheumatoid arthritis
     Route: 065
  124. CETIRIZINE [Suspect]
     Active Substance: CETIRIZINE HYDROCHLORIDE
     Route: 065
  125. CHLORHEXIDINE GLUCONATE [Suspect]
     Active Substance: CHLORHEXIDINE GLUCONATE
     Indication: Product used for unknown indication
     Route: 061
  126. CHLORHEXIDINE GLUCONATE [Suspect]
     Active Substance: CHLORHEXIDINE GLUCONATE
     Indication: Rheumatoid arthritis
     Route: 065
  127. CHLORHEXIDINE GLUCONATE [Suspect]
     Active Substance: CHLORHEXIDINE GLUCONATE
     Route: 065
  128. CHOLECALCIFEROL [Suspect]
     Active Substance: CHOLECALCIFEROL
     Indication: Product used for unknown indication
     Route: 065
  129. CIMZIA [Suspect]
     Active Substance: CERTOLIZUMAB PEGOL
     Route: 058
  130. CIMZIA [Suspect]
     Active Substance: CERTOLIZUMAB PEGOL
     Route: 058
  131. CIMZIA [Suspect]
     Active Substance: CERTOLIZUMAB PEGOL
     Route: 058
  132. CIMZIA [Suspect]
     Active Substance: CERTOLIZUMAB PEGOL
     Indication: Rheumatoid arthritis
     Route: 058
  133. CIMZIA [Suspect]
     Active Substance: CERTOLIZUMAB PEGOL
     Route: 058
  134. CORTISONE ACETATE [Suspect]
     Active Substance: CORTISONE ACETATE
     Route: 061
  135. CORTISONE ACETATE [Suspect]
     Active Substance: CORTISONE ACETATE
     Indication: Rheumatoid arthritis
     Route: 065
  136. CORTISONE ACETATE [Suspect]
     Active Substance: CORTISONE ACETATE
     Route: 065
  137. CORTISONE ACETATE [Suspect]
     Active Substance: CORTISONE ACETATE
     Route: 065
  138. CORTISONE ACETATE [Suspect]
     Active Substance: CORTISONE ACETATE
     Route: 065
  139. COSENTYX [Suspect]
     Active Substance: SECUKINUMAB
     Indication: Product used for unknown indication
     Route: 065
  140. COSENTYX [Suspect]
     Active Substance: SECUKINUMAB
     Indication: Psoriatic arthropathy
     Route: 065
  141. COSENTYX [Suspect]
     Active Substance: SECUKINUMAB
     Indication: Rheumatoid arthritis
     Route: 065
  142. DICLOFENAC SODIUM [Suspect]
     Active Substance: DICLOFENAC SODIUM
     Indication: Product used for unknown indication
     Route: 058
  143. DICLOFENAC SODIUM [Suspect]
     Active Substance: DICLOFENAC SODIUM
     Route: 065
  144. DICLOFENAC SODIUM [Suspect]
     Active Substance: DICLOFENAC SODIUM
     Route: 058
  145. DICLOFENAC SODIUM [Suspect]
     Active Substance: DICLOFENAC SODIUM
     Route: 065
  146. DICLOFENAC SODIUM [Suspect]
     Active Substance: DICLOFENAC SODIUM
     Route: 065
  147. DESOXIMETASONE [Suspect]
     Active Substance: DESOXIMETASONE
     Indication: Rheumatoid arthritis
     Route: 065
  148. DESOXIMETASONE [Suspect]
     Active Substance: DESOXIMETASONE
     Route: 065
  149. DESOXIMETASONE [Suspect]
     Active Substance: DESOXIMETASONE
     Route: 058
  150. DESOXIMETASONE [Suspect]
     Active Substance: DESOXIMETASONE
     Route: 058
  151. DESOXIMETASONE [Suspect]
     Active Substance: DESOXIMETASONE
     Route: 058
  152. DOMPERIDONE MALEATE [Suspect]
     Active Substance: DOMPERIDONE MALEATE
     Indication: Product used for unknown indication
     Route: 065
  153. DOMPERIDONE MALEATE [Suspect]
     Active Substance: DOMPERIDONE MALEATE
     Route: 065
  154. ERELZI [Suspect]
     Active Substance: ETANERCEPT-SZZS
     Route: 048
  155. ERELZI [Suspect]
     Active Substance: ETANERCEPT-SZZS
     Indication: Rheumatoid arthritis
     Route: 058
  156. ERELZI [Suspect]
     Active Substance: ETANERCEPT-SZZS
     Route: 058
  157. ERELZI [Suspect]
     Active Substance: ETANERCEPT-SZZS
     Route: 058
  158. ERELZI [Suspect]
     Active Substance: ETANERCEPT-SZZS
     Route: 065
  159. ERELZI [Suspect]
     Active Substance: ETANERCEPT-SZZS
     Route: 065
  160. ENBREL [Suspect]
     Active Substance: ETANERCEPT
     Dosage: 10 MG, QW
     Route: 058
  161. ENBREL [Suspect]
     Active Substance: ETANERCEPT
     Route: 058
  162. ENBREL [Suspect]
     Active Substance: ETANERCEPT
     Route: 058
  163. ENBREL [Suspect]
     Active Substance: ETANERCEPT
     Route: 065
  164. ENBREL [Suspect]
     Active Substance: ETANERCEPT
     Route: 058
  165. ENBREL [Suspect]
     Active Substance: ETANERCEPT
     Indication: Rheumatoid arthritis
     Route: 058
  166. ENBREL [Suspect]
     Active Substance: ETANERCEPT
     Route: 058
  167. ENBREL [Suspect]
     Active Substance: ETANERCEPT
     Route: 058
  168. ENBREL [Suspect]
     Active Substance: ETANERCEPT
     Route: 058
  169. ENBREL [Suspect]
     Active Substance: ETANERCEPT
     Route: 058
  170. ENBREL [Suspect]
     Active Substance: ETANERCEPT
     Route: 065
  171. ENBREL [Suspect]
     Active Substance: ETANERCEPT
     Route: 065
  172. ERGOCALCIFEROL [Suspect]
     Active Substance: ERGOCALCIFEROL
     Indication: Product used for unknown indication
     Route: 065
  173. ERGOCALCIFEROL [Suspect]
     Active Substance: ERGOCALCIFEROL
     Route: 065
  174. FOLIC ACID [Suspect]
     Active Substance: FOLIC ACID
     Route: 048
  175. FOLIC ACID [Suspect]
     Active Substance: FOLIC ACID
     Route: 048
  176. FOLIC ACID [Suspect]
     Active Substance: FOLIC ACID
     Route: 065
  177. FOLIC ACID [Suspect]
     Active Substance: FOLIC ACID
     Route: 065
  178. FOLIC ACID [Suspect]
     Active Substance: FOLIC ACID
     Route: 058
  179. FOLIC ACID [Suspect]
     Active Substance: FOLIC ACID
     Route: 058
  180. FOLIC ACID [Suspect]
     Active Substance: FOLIC ACID
     Route: 065
  181. FOLIC ACID [Suspect]
     Active Substance: FOLIC ACID
     Indication: Product used for unknown indication
     Route: 048
  182. FOLIC ACID [Suspect]
     Active Substance: FOLIC ACID
     Route: 065
  183. FOLIC ACID [Suspect]
     Active Substance: FOLIC ACID
     Route: 048
  184. FOLIC ACID [Suspect]
     Active Substance: FOLIC ACID
     Route: 058
  185. FOLIC ACID [Suspect]
     Active Substance: FOLIC ACID
     Route: 065
  186. FOLIC ACID [Suspect]
     Active Substance: FOLIC ACID
     Route: 048
  187. FOLIC ACID [Suspect]
     Active Substance: FOLIC ACID
     Route: 065
  188. FOLIC ACID [Suspect]
     Active Substance: FOLIC ACID
     Route: 065
  189. FOLIC ACID [Suspect]
     Active Substance: FOLIC ACID
     Route: 065
  190. FOLIC ACID [Suspect]
     Active Substance: FOLIC ACID
     Route: 065
  191. FOLIC ACID [Suspect]
     Active Substance: FOLIC ACID
     Route: 048
  192. FOLIC ACID [Suspect]
     Active Substance: FOLIC ACID
     Route: 048
  193. FOLIC ACID [Suspect]
     Active Substance: FOLIC ACID
     Route: 065
  194. FOLIC ACID [Suspect]
     Active Substance: FOLIC ACID
     Indication: Rheumatoid arthritis
     Route: 065
  195. FOLIC ACID [Suspect]
     Active Substance: FOLIC ACID
     Route: 065
  196. FLUMETHASONE [Suspect]
     Active Substance: FLUMETHASONE
     Indication: Product used for unknown indication
     Route: 065
  197. FOSAMAX [Suspect]
     Active Substance: ALENDRONATE SODIUM
     Route: 016
  198. FOSAMAX [Suspect]
     Active Substance: ALENDRONATE SODIUM
     Indication: Rheumatoid arthritis
     Route: 048
  199. FOSAMAX [Suspect]
     Active Substance: ALENDRONATE SODIUM
     Route: 058
  200. GOLD [Suspect]
     Active Substance: GOLD
     Indication: Product used for unknown indication
     Route: 065
  201. HAIR KERATIN AMINO ACIDS GOLD COMPLEX [Suspect]
     Active Substance: HAIR KERATIN AMINO ACIDS GOLD COMPLEX
     Indication: Product used for unknown indication
     Route: 065
  202. GOLD SODIUM THIOMALATE [Suspect]
     Active Substance: GOLD SODIUM THIOMALATE
     Indication: Product used for unknown indication
     Route: 030
  203. GOLD SODIUM THIOMALATE [Suspect]
     Active Substance: GOLD SODIUM THIOMALATE
     Route: 030
  204. GOLD SODIUM THIOMALATE [Suspect]
     Active Substance: GOLD SODIUM THIOMALATE
     Route: 065
  205. HYDROCORTISONE [Suspect]
     Active Substance: HYDROCORTISONE
     Indication: Product used for unknown indication
     Route: 065
  206. HYDROCORTISONE [Suspect]
     Active Substance: HYDROCORTISONE
     Route: 065
  207. HUMIRA [Suspect]
     Active Substance: ADALIMUMAB
     Indication: Rheumatoid arthritis
     Route: 058
  208. HUMIRA [Suspect]
     Active Substance: ADALIMUMAB
     Route: 058
  209. HUMIRA [Suspect]
     Active Substance: ADALIMUMAB
     Route: 058
  210. HUMIRA [Suspect]
     Active Substance: ADALIMUMAB
     Route: 057
  211. HUMIRA [Suspect]
     Active Substance: ADALIMUMAB
     Indication: Product used for unknown indication
     Route: 058
  212. HUMIRA [Suspect]
     Active Substance: ADALIMUMAB
     Route: 058
  213. HUMIRA [Suspect]
     Active Substance: ADALIMUMAB
     Route: 065
  214. HUMIRA [Suspect]
     Active Substance: ADALIMUMAB
     Route: 065
  215. HYDROCORTISONE PROBUTATE [Suspect]
     Active Substance: HYDROCORTISONE PROBUTATE
     Indication: Rheumatoid arthritis
     Route: 065
  216. HYDROCORTISONE PROBUTATE [Suspect]
     Active Substance: HYDROCORTISONE PROBUTATE
     Indication: Product used for unknown indication
     Route: 065
  217. HYDROXYCHLOROQUINE [Suspect]
     Active Substance: HYDROXYCHLOROQUINE
     Dosage: 40 MG, QD, 1 EVERY 1 DAYS
     Route: 048
  218. HYDROXYCHLOROQUINE [Suspect]
     Active Substance: HYDROXYCHLOROQUINE
     Route: 065
  219. HYDROXYCHLOROQUINE [Suspect]
     Active Substance: HYDROXYCHLOROQUINE
     Dosage: 400 MG, QD, 1 EVERY 1 DAYS
     Route: 048
  220. HYDROXYCHLOROQUINE [Suspect]
     Active Substance: HYDROXYCHLOROQUINE
     Dosage: 400 MG, QD, 1 EVERY 1 DAYS
     Route: 048
  221. HYDROXYCHLOROQUINE [Suspect]
     Active Substance: HYDROXYCHLOROQUINE
     Dosage: 400 MG, QD, 1 EVERY 1 DAYS
     Route: 048
  222. HYDROXYCHLOROQUINE [Suspect]
     Active Substance: HYDROXYCHLOROQUINE
     Dosage: 400 MG, QD, 1 EVERY 1 DAYS
     Route: 048
  223. HYDROXYCHLOROQUINE [Suspect]
     Active Substance: HYDROXYCHLOROQUINE
     Dosage: 400 MG, QD, 1 EVERY 1 DAYS
     Route: 048
  224. HYDROXYCHLOROQUINE [Suspect]
     Active Substance: HYDROXYCHLOROQUINE
     Dosage: 400 MG, QD, 1 EVERY 1 DAYS
     Route: 065
  225. HYDROXYCHLOROQUINE [Suspect]
     Active Substance: HYDROXYCHLOROQUINE
     Dosage: 4000 MG, QD
     Route: 065
  226. HYDROXYCHLOROQUINE [Suspect]
     Active Substance: HYDROXYCHLOROQUINE
     Indication: Rheumatoid arthritis
     Route: 058
  227. HYDROXYCHLOROQUINE [Suspect]
     Active Substance: HYDROXYCHLOROQUINE
     Route: 016
  228. HYDROXYCHLOROQUINE [Suspect]
     Active Substance: HYDROXYCHLOROQUINE
     Route: 048
  229. HYDROXYCHLOROQUINE [Suspect]
     Active Substance: HYDROXYCHLOROQUINE
     Route: 048
  230. HYDROXYCHLOROQUINE [Suspect]
     Active Substance: HYDROXYCHLOROQUINE
     Route: 048
  231. HYDROXYCHLOROQUINE [Suspect]
     Active Substance: HYDROXYCHLOROQUINE
     Route: 058
  232. HYDROXYCHLOROQUINE [Suspect]
     Active Substance: HYDROXYCHLOROQUINE
     Route: 058
  233. HYDROXYCHLOROQUINE [Suspect]
     Active Substance: HYDROXYCHLOROQUINE
     Route: 065
  234. HYDROXYCHLOROQUINE [Suspect]
     Active Substance: HYDROXYCHLOROQUINE
     Route: 065
  235. HYDROXYCHLOROQUINE [Suspect]
     Active Substance: HYDROXYCHLOROQUINE
     Route: 065
  236. HYDROXYCHLOROQUINE [Suspect]
     Active Substance: HYDROXYCHLOROQUINE
     Route: 065
  237. HYDROXYCHLOROQUINE [Suspect]
     Active Substance: HYDROXYCHLOROQUINE
     Route: 065
  238. HYDROXYCHLOROQUINE [Suspect]
     Active Substance: HYDROXYCHLOROQUINE
     Route: 065
  239. HYDROXYCHLOROQUINE SULFATE [Suspect]
     Active Substance: HYDROXYCHLOROQUINE SULFATE
     Route: 065
  240. HYDROXYCHLOROQUINE SULFATE [Suspect]
     Active Substance: HYDROXYCHLOROQUINE SULFATE
     Dosage: 400 MG, QD
     Route: 048
  241. HYDROXYCHLOROQUINE SULFATE [Suspect]
     Active Substance: HYDROXYCHLOROQUINE SULFATE
     Dosage: 400 MG, QD
     Route: 065
  242. HYDROXYCHLOROQUINE SULFATE [Suspect]
     Active Substance: HYDROXYCHLOROQUINE SULFATE
     Dosage: 400 MG, QD
     Route: 065
  243. HYDROXYCHLOROQUINE SULFATE [Suspect]
     Active Substance: HYDROXYCHLOROQUINE SULFATE
     Route: 065
  244. HYDROXYCHLOROQUINE SULFATE [Suspect]
     Active Substance: HYDROXYCHLOROQUINE SULFATE
     Indication: Rheumatoid arthritis
     Route: 016
  245. HYDROXYCHLOROQUINE SULFATE [Suspect]
     Active Substance: HYDROXYCHLOROQUINE SULFATE
     Route: 048
  246. HYDROXYCHLOROQUINE SULFATE [Suspect]
     Active Substance: HYDROXYCHLOROQUINE SULFATE
     Route: 048
  247. HYDROXYCHLOROQUINE SULFATE [Suspect]
     Active Substance: HYDROXYCHLOROQUINE SULFATE
     Route: 065
  248. HYDROXYCHLOROQUINE SULFATE [Suspect]
     Active Substance: HYDROXYCHLOROQUINE SULFATE
     Route: 065
  249. IMURAN [Suspect]
     Active Substance: AZATHIOPRINE
     Indication: Rheumatoid arthritis
     Route: 065
  250. IMURAN [Suspect]
     Active Substance: AZATHIOPRINE
     Route: 065
  251. IMURAN [Suspect]
     Active Substance: AZATHIOPRINE
     Route: 065
  252. IMURAN [Suspect]
     Active Substance: AZATHIOPRINE
     Route: 065
  253. INFLIXIMAB [Suspect]
     Active Substance: INFLIXIMAB
     Route: 042
  254. INFLIXIMAB [Suspect]
     Active Substance: INFLIXIMAB
     Route: 042
  255. INFLIXIMAB [Suspect]
     Active Substance: INFLIXIMAB
     Route: 065
  256. INFLIXIMAB [Suspect]
     Active Substance: INFLIXIMAB
     Route: 065
  257. INFLIXIMAB [Suspect]
     Active Substance: INFLIXIMAB
     Indication: Product used for unknown indication
     Route: 042
  258. INFLIXIMAB [Suspect]
     Active Substance: INFLIXIMAB
     Route: 042
  259. INFLIXIMAB [Suspect]
     Active Substance: INFLIXIMAB
     Indication: Rheumatoid arthritis
     Route: 042
  260. INFLIXIMAB [Suspect]
     Active Substance: INFLIXIMAB
     Route: 042
  261. INFLIXIMAB [Suspect]
     Active Substance: INFLIXIMAB
     Route: 058
  262. INFLIXIMAB [Suspect]
     Active Substance: INFLIXIMAB
     Route: 065
  263. INFLIXIMAB [Suspect]
     Active Substance: INFLIXIMAB
     Route: 065
  264. ISOPROPYL ALCOHOL [Suspect]
     Active Substance: ISOPROPYL ALCOHOL
     Indication: Product used for unknown indication
     Route: 061
  265. ISOPROPYL ALCOHOL [Suspect]
     Active Substance: ISOPROPYL ALCOHOL
     Route: 061
  266. KEVZARA [Suspect]
     Active Substance: SARILUMAB
     Indication: Product used for unknown indication
     Route: 065
  267. LEFLUNOMIDE [Suspect]
     Active Substance: LEFLUNOMIDE
     Dosage: 10 MG, QD
     Route: 048
  268. LEFLUNOMIDE [Suspect]
     Active Substance: LEFLUNOMIDE
     Dosage: 10 MG, QD
     Route: 065
  269. LEFLUNOMIDE [Suspect]
     Active Substance: LEFLUNOMIDE
     Indication: Product used for unknown indication
     Dosage: 20 MG, QD
     Route: 065
  270. LEFLUNOMIDE [Suspect]
     Active Substance: LEFLUNOMIDE
     Route: 065
  271. LEFLUNOMIDE [Suspect]
     Active Substance: LEFLUNOMIDE
     Indication: Rheumatoid arthritis
     Route: 048
  272. LEFLUNOMIDE [Suspect]
     Active Substance: LEFLUNOMIDE
     Route: 065
  273. LAMICTAL [Suspect]
     Active Substance: LAMOTRIGINE
     Route: 048
  274. LAMICTAL [Suspect]
     Active Substance: LAMOTRIGINE
     Route: 048
  275. LAMICTAL [Suspect]
     Active Substance: LAMOTRIGINE
     Route: 048
  276. LAMICTAL [Suspect]
     Active Substance: LAMOTRIGINE
     Route: 048
  277. LAMICTAL [Suspect]
     Active Substance: LAMOTRIGINE
     Route: 048
  278. LAMICTAL [Suspect]
     Active Substance: LAMOTRIGINE
     Route: 048
  279. LAMICTAL [Suspect]
     Active Substance: LAMOTRIGINE
     Route: 048
  280. LAMICTAL [Suspect]
     Active Substance: LAMOTRIGINE
     Indication: Product used for unknown indication
     Route: 048
  281. LAMICTAL [Suspect]
     Active Substance: LAMOTRIGINE
     Route: 048
  282. FLUMETHASONE PIVALATE [Suspect]
     Active Substance: FLUMETHASONE PIVALATE
     Indication: Product used for unknown indication
     Route: 003
  283. METFORMIN HYDROCHLORIDE [Suspect]
     Active Substance: METFORMIN HYDROCHLORIDE
     Indication: Product used for unknown indication
     Route: 065
  284. METHOTREXATE [Suspect]
     Active Substance: METHOTREXATE
     Route: 048
  285. METHOTREXATE [Suspect]
     Active Substance: METHOTREXATE
     Dosage: 15 MG, QW
     Route: 058
  286. METHOTREXATE [Suspect]
     Active Substance: METHOTREXATE
     Dosage: 20 MG, QW
     Route: 048
  287. METHOTREXATE [Suspect]
     Active Substance: METHOTREXATE
     Dosage: 20 MG, QW
     Route: 058
  288. METHOTREXATE [Suspect]
     Active Substance: METHOTREXATE
     Route: 065
  289. METHOTREXATE [Suspect]
     Active Substance: METHOTREXATE
     Dosage: 25 MG, QW
     Route: 013
  290. METHOTREXATE [Suspect]
     Active Substance: METHOTREXATE
     Dosage: 25 MG, QW
     Route: 048
  291. METHOTREXATE [Suspect]
     Active Substance: METHOTREXATE
     Dosage: 25 MG, QW
     Route: 058
  292. METHOTREXATE [Suspect]
     Active Substance: METHOTREXATE
     Dosage: 25 MG, QW
     Route: 065
  293. METHOTREXATE [Suspect]
     Active Substance: METHOTREXATE
     Dosage: 25 MG, QD
     Route: 048
  294. METHOTREXATE [Suspect]
     Active Substance: METHOTREXATE
     Indication: Rheumatoid arthritis
     Dosage: 25 MG, Q12H
     Route: 048
  295. METHOTREXATE [Suspect]
     Active Substance: METHOTREXATE
     Route: 013
  296. METHOTREXATE [Suspect]
     Active Substance: METHOTREXATE
     Route: 048
  297. METHOTREXATE [Suspect]
     Active Substance: METHOTREXATE
     Route: 048
  298. METHOTREXATE [Suspect]
     Active Substance: METHOTREXATE
     Route: 065
  299. METHOTREXATE [Suspect]
     Active Substance: METHOTREXATE
     Route: 065
  300. METHOTREXATE [Suspect]
     Active Substance: METHOTREXATE
     Route: 065
  301. METHOTREXATE [Suspect]
     Active Substance: METHOTREXATE
     Route: 065
  302. METHOTREXATE [Suspect]
     Active Substance: METHOTREXATE
     Route: 048
  303. METHOTREXATE [Suspect]
     Active Substance: METHOTREXATE
     Dosage: 50 MG, QD
     Route: 048
  304. METHOTREXATE [Suspect]
     Active Substance: METHOTREXATE
     Route: 016
  305. METHOTREXATE [Suspect]
     Active Substance: METHOTREXATE
     Route: 048
  306. METHOTREXATE [Suspect]
     Active Substance: METHOTREXATE
     Route: 058
  307. METHOTREXATE [Suspect]
     Active Substance: METHOTREXATE
     Route: 065
  308. METHOTREXATE [Suspect]
     Active Substance: METHOTREXATE
     Route: 065
  309. MAGNESIUM CITRATE [Suspect]
     Active Substance: MAGNESIUM CITRATE
     Indication: Product used for unknown indication
     Route: 065
  310. MEGLUMINE [Suspect]
     Active Substance: MEGLUMINE
     Indication: Product used for unknown indication
     Route: 042
  311. MEGLUMINE [Suspect]
     Active Substance: MEGLUMINE
     Route: 065
  312. METHYLPREDNISOLONE [Suspect]
     Active Substance: METHYLPREDNISOLONE
     Indication: Product used for unknown indication
     Route: 065
  313. METHYLPREDNISOLONE [Suspect]
     Active Substance: METHYLPREDNISOLONE
     Route: 065
  314. METHYLPREDNISOLONE SODIUM SUCCINATE [Suspect]
     Active Substance: METHYLPREDNISOLONE SODIUM SUCCINATE
     Indication: Product used for unknown indication
     Route: 065
  315. MINOCIN [Suspect]
     Active Substance: MINOCYCLINE HYDROCHLORIDE
     Indication: Rheumatoid arthritis
     Route: 065
  316. MINOCYCLINE [Suspect]
     Active Substance: MINOCYCLINE HYDROCHLORIDE
     Indication: Product used for unknown indication
     Route: 065
  317. MINOCYCLINE HYDROCHLORIDE [Suspect]
     Active Substance: MINOCYCLINE HYDROCHLORIDE
     Indication: Product used for unknown indication
     Route: 065
  318. MINOCYCLINE HYDROCHLORIDE [Suspect]
     Active Substance: MINOCYCLINE HYDROCHLORIDE
     Indication: Rheumatoid arthritis
  319. MYOCHRYSINE [Suspect]
     Active Substance: GOLD SODIUM THIOMALATE
     Indication: Rheumatoid arthritis
     Route: 030
  320. MYOCHRYSINE [Suspect]
     Active Substance: GOLD SODIUM THIOMALATE
     Route: 030
  321. MYRBETRIQ [Suspect]
     Active Substance: MIRABEGRON
     Dosage: 1 DF (1 EVERY 1 DAYS), EXTENDED RELEASE TABLET
     Route: 065
  322. MYRBETRIQ [Suspect]
     Active Substance: MIRABEGRON
     Indication: Product used for unknown indication
     Dosage: 1 DF (1 EVERY 2 DAYS)
     Route: 065
  323. MYRBETRIQ [Suspect]
     Active Substance: MIRABEGRON
     Route: 065
  324. MYRBETRIQ [Suspect]
     Active Substance: MIRABEGRON
     Route: 065
  325. MYRBETRIQ [Suspect]
     Active Substance: MIRABEGRON
     Route: 065
  326. NAPROXEN [Suspect]
     Active Substance: NAPROXEN
     Indication: Product used for unknown indication
     Route: 065
  327. NAPROXEN [Suspect]
     Active Substance: NAPROXEN
     Route: 065
  328. NAPROXEN [Suspect]
     Active Substance: NAPROXEN
     Indication: Product used for unknown indication
     Route: 065
  329. NAPROXEN SODIUM [Suspect]
     Active Substance: NAPROXEN SODIUM
     Indication: Product used for unknown indication
     Route: 065
  330. NAPROXEN SODIUM [Suspect]
     Active Substance: NAPROXEN SODIUM
     Indication: Rheumatoid arthritis
     Route: 065
  331. NAPROXEN SODIUM [Suspect]
     Active Substance: NAPROXEN SODIUM
     Route: 065
  332. NICOTINAMIDE [Suspect]
     Active Substance: NIACINAMIDE
     Indication: Product used for unknown indication
     Route: 065
  333. NICOTINAMIDE [Suspect]
     Active Substance: NIACINAMIDE
     Route: 065
  334. NUCALA [Suspect]
     Active Substance: MEPOLIZUMAB
     Indication: Product used for unknown indication
     Route: 065
  335. NUCALA [Suspect]
     Active Substance: MEPOLIZUMAB
     Route: 065
  336. OXYCODONE [Suspect]
     Active Substance: OXYCODONE
     Indication: Product used for unknown indication
     Route: 065
  337. ORENCIA [Suspect]
     Active Substance: ABATACEPT
     Dosage: 125 MG, QW
     Route: 058
  338. ORENCIA [Suspect]
     Active Substance: ABATACEPT
     Route: 065
  339. ORENCIA [Suspect]
     Active Substance: ABATACEPT
     Route: 065
  340. ORENCIA [Suspect]
     Active Substance: ABATACEPT
     Route: 065
  341. ORENCIA [Suspect]
     Active Substance: ABATACEPT
     Route: 065
  342. ORENCIA [Suspect]
     Active Substance: ABATACEPT
     Route: 065
  343. ORENCIA [Suspect]
     Active Substance: ABATACEPT
     Route: 065
  344. ORENCIA [Suspect]
     Active Substance: ABATACEPT
     Route: 058
  345. ORENCIA [Suspect]
     Active Substance: ABATACEPT
     Indication: Rheumatoid arthritis
     Route: 065
  346. ORENCIA [Suspect]
     Active Substance: ABATACEPT
     Route: 065
  347. ORENCIA [Suspect]
     Active Substance: ABATACEPT
     Route: 065
  348. ORENCIA [Suspect]
     Active Substance: ABATACEPT
     Route: 065
  349. ORENCIA [Suspect]
     Active Substance: ABATACEPT
     Route: 065
  350. ORENCIA [Suspect]
     Active Substance: ABATACEPT
     Route: 065
  351. ORENCIA [Suspect]
     Active Substance: ABATACEPT
     Route: 065
  352. OXYCODONE TEREPHTHALATE [Suspect]
     Active Substance: OXYCODONE TEREPHTHALATE
     Indication: Product used for unknown indication
     Route: 065
  353. PHENYLEPHRINE HYDROCHLORIDE [Suspect]
     Active Substance: PHENYLEPHRINE HYDROCHLORIDE
     Route: 065
  354. PHENYLEPHRINE HYDROCHLORIDE [Suspect]
     Active Substance: PHENYLEPHRINE HYDROCHLORIDE
     Indication: Product used for unknown indication
     Route: 065
  355. PERIOGARD [Suspect]
     Active Substance: CHLORHEXIDINE GLUCONATE
     Indication: Product used for unknown indication
     Route: 065
  356. PHTHALYLSULFATHIAZOLE [Suspect]
     Active Substance: PHTHALYLSULFATHIAZOLE
     Dosage: 2000 MG, QD
     Route: 048
  357. PHTHALYLSULFATHIAZOLE [Suspect]
     Active Substance: PHTHALYLSULFATHIAZOLE
     Route: 065
  358. PHTHALYLSULFATHIAZOLE [Suspect]
     Active Substance: PHTHALYLSULFATHIAZOLE
     Indication: Rheumatoid arthritis
     Route: 048
  359. PHTHALYLSULFATHIAZOLE [Suspect]
     Active Substance: PHTHALYLSULFATHIAZOLE
     Route: 058
  360. PHTHALYLSULFATHIAZOLE [Suspect]
     Active Substance: PHTHALYLSULFATHIAZOLE
     Indication: Product used for unknown indication
     Route: 065
  361. PHTHALYLSULFATHIAZOLE [Suspect]
     Active Substance: PHTHALYLSULFATHIAZOLE
     Route: 065
  362. PHTHALYLSULFATHIAZOLE [Suspect]
     Active Substance: PHTHALYLSULFATHIAZOLE
     Route: 065
  363. PHTHALYLSULFATHIAZOLE [Suspect]
     Active Substance: PHTHALYLSULFATHIAZOLE
     Route: 065
  364. PLAQUENIL [Suspect]
     Active Substance: HYDROXYCHLOROQUINE SULFATE
     Indication: Rheumatoid arthritis
     Route: 065
  365. PREDNISONE [Suspect]
     Active Substance: PREDNISONE
     Route: 048
  366. PREDNISONE [Suspect]
     Active Substance: PREDNISONE
     Route: 065
  367. PREDNISONE [Suspect]
     Active Substance: PREDNISONE
     Route: 065
  368. PREDNISONE [Suspect]
     Active Substance: PREDNISONE
     Dosage: 20 MG, QD
     Route: 048
  369. PREDNISONE [Suspect]
     Active Substance: PREDNISONE
     Route: 048
  370. PREDNISONE [Suspect]
     Active Substance: PREDNISONE
     Route: 065
  371. PREDNISONE [Suspect]
     Active Substance: PREDNISONE
     Dosage: 50 MG, QD
     Route: 048
  372. PREDNISONE [Suspect]
     Active Substance: PREDNISONE
     Route: 048
  373. PREDNISONE [Suspect]
     Active Substance: PREDNISONE
     Indication: Rheumatoid arthritis
     Route: 065
  374. PREDNISONE [Suspect]
     Active Substance: PREDNISONE
     Route: 065
  375. PSEUDOEPHEDRINE [Suspect]
     Active Substance: PSEUDOEPHEDRINE
     Indication: Product used for unknown indication
     Route: 065
  376. PSEUDOEPHEDRINE HYDROCHLORIDE [Suspect]
     Active Substance: PSEUDOEPHEDRINE HYDROCHLORIDE
     Route: 065
  377. PSEUDOEPHEDRINE HYDROCHLORIDE [Suspect]
     Active Substance: PSEUDOEPHEDRINE HYDROCHLORIDE
     Indication: Rheumatoid arthritis
     Route: 065
  378. PSEUDOEPHEDRINE HYDROCHLORIDE [Suspect]
     Active Substance: PSEUDOEPHEDRINE HYDROCHLORIDE
     Route: 065
  379. PSEUDOEPHEDRINE HYDROCHLORIDE [Suspect]
     Active Substance: PSEUDOEPHEDRINE HYDROCHLORIDE
     Route: 065
  380. RITUXIMAB [Suspect]
     Active Substance: RITUXIMAB
     Dosage: 1000 MG, Q12H
     Route: 065
  381. RITUXIMAB [Suspect]
     Active Substance: RITUXIMAB
     Dosage: 2 G, QD
     Route: 042
  382. RITUXIMAB [Suspect]
     Active Substance: RITUXIMAB
     Dosage: 2 G, QD
     Route: 065
  383. RITUXIMAB [Suspect]
     Active Substance: RITUXIMAB
     Dosage: 2 G, QD
     Route: 065
  384. RITUXIMAB [Suspect]
     Active Substance: RITUXIMAB
     Dosage: 2000 MG, QD
     Route: 065
  385. RITUXIMAB [Suspect]
     Active Substance: RITUXIMAB
     Dosage: 2000 MG, QD
     Route: 065
  386. RITUXIMAB [Suspect]
     Active Substance: RITUXIMAB
     Dosage: 2000 MG, QD
     Route: 065
  387. RITUXIMAB [Suspect]
     Active Substance: RITUXIMAB
     Dosage: 2000 MG, QD
     Route: 065
  388. RITUXIMAB [Suspect]
     Active Substance: RITUXIMAB
     Route: 042
  389. RITUXIMAB [Suspect]
     Active Substance: RITUXIMAB
     Route: 065
  390. RITUXIMAB [Suspect]
     Active Substance: RITUXIMAB
     Route: 065
  391. RITUXIMAB [Suspect]
     Active Substance: RITUXIMAB
     Route: 042
  392. RITUXIMAB [Suspect]
     Active Substance: RITUXIMAB
     Route: 065
  393. RITUXIMAB [Suspect]
     Active Substance: RITUXIMAB
     Route: 016
  394. RITUXIMAB [Suspect]
     Active Substance: RITUXIMAB
     Route: 016
  395. RITUXIMAB [Suspect]
     Active Substance: RITUXIMAB
     Route: 016
  396. RITUXIMAB [Suspect]
     Active Substance: RITUXIMAB
     Route: 043
  397. RITUXIMAB [Suspect]
     Active Substance: RITUXIMAB
     Route: 043
  398. RITUXIMAB [Suspect]
     Active Substance: RITUXIMAB
     Route: 058
  399. RITUXIMAB [Suspect]
     Active Substance: RITUXIMAB
     Route: 058
  400. RITUXIMAB [Suspect]
     Active Substance: RITUXIMAB
     Route: 058
  401. RITUXIMAB [Suspect]
     Active Substance: RITUXIMAB
     Route: 065
  402. RITUXIMAB [Suspect]
     Active Substance: RITUXIMAB
     Route: 065
  403. RITUXIMAB [Suspect]
     Active Substance: RITUXIMAB
     Route: 065
  404. RITUXIMAB [Suspect]
     Active Substance: RITUXIMAB
     Route: 065
  405. RITUXIMAB [Suspect]
     Active Substance: RITUXIMAB
     Route: 041
  406. RITUXIMAB [Suspect]
     Active Substance: RITUXIMAB
     Route: 041
  407. RITUXIMAB [Suspect]
     Active Substance: RITUXIMAB
     Indication: Rheumatoid arthritis
     Route: 042
  408. RITUXIMAB [Suspect]
     Active Substance: RITUXIMAB
     Route: 041
  409. RITUXIMAB [Suspect]
     Active Substance: RITUXIMAB
     Indication: Product used for unknown indication
     Route: 065
  410. RAMIPRIL [Suspect]
     Active Substance: RAMIPRIL
     Indication: Rheumatoid arthritis
     Route: 016
  411. RAMIPRIL [Suspect]
     Active Substance: RAMIPRIL
     Indication: Product used for unknown indication
     Route: 065
  412. RAMIPRIL [Suspect]
     Active Substance: RAMIPRIL
     Route: 065
  413. RANITIDINE [Suspect]
     Active Substance: RANITIDINE
     Indication: Product used for unknown indication
     Route: 065
  414. CETIRIZINE HYDROCHLORIDE\PSEUDOEPHEDRINE HYDROCHLORIDE [Suspect]
     Active Substance: CETIRIZINE HYDROCHLORIDE\PSEUDOEPHEDRINE HYDROCHLORIDE
     Route: 065
  415. CETIRIZINE HYDROCHLORIDE\PSEUDOEPHEDRINE HYDROCHLORIDE [Suspect]
     Active Substance: CETIRIZINE HYDROCHLORIDE\PSEUDOEPHEDRINE HYDROCHLORIDE
     Route: 065
  416. CETIRIZINE HYDROCHLORIDE\PSEUDOEPHEDRINE HYDROCHLORIDE [Suspect]
     Active Substance: CETIRIZINE HYDROCHLORIDE\PSEUDOEPHEDRINE HYDROCHLORIDE
     Route: 065
  417. CETIRIZINE HYDROCHLORIDE\PSEUDOEPHEDRINE HYDROCHLORIDE [Suspect]
     Active Substance: CETIRIZINE HYDROCHLORIDE\PSEUDOEPHEDRINE HYDROCHLORIDE
     Route: 065
  418. CETIRIZINE HYDROCHLORIDE\PSEUDOEPHEDRINE HYDROCHLORIDE [Suspect]
     Active Substance: CETIRIZINE HYDROCHLORIDE\PSEUDOEPHEDRINE HYDROCHLORIDE
     Route: 065
  419. CETIRIZINE HYDROCHLORIDE\PSEUDOEPHEDRINE HYDROCHLORIDE [Suspect]
     Active Substance: CETIRIZINE HYDROCHLORIDE\PSEUDOEPHEDRINE HYDROCHLORIDE
     Indication: Rheumatoid arthritis
     Route: 065
  420. CETIRIZINE HYDROCHLORIDE\PSEUDOEPHEDRINE HYDROCHLORIDE [Suspect]
     Active Substance: CETIRIZINE HYDROCHLORIDE\PSEUDOEPHEDRINE HYDROCHLORIDE
     Route: 065
  421. CETIRIZINE HYDROCHLORIDE\PSEUDOEPHEDRINE HYDROCHLORIDE [Suspect]
     Active Substance: CETIRIZINE HYDROCHLORIDE\PSEUDOEPHEDRINE HYDROCHLORIDE
     Indication: Product used for unknown indication
     Route: 065
  422. REMICADE [Suspect]
     Active Substance: INFLIXIMAB
     Route: 065
  423. REMICADE [Suspect]
     Active Substance: INFLIXIMAB
     Dosage: 500 MG, QD
     Route: 065
  424. REMICADE [Suspect]
     Active Substance: INFLIXIMAB
     Route: 065
  425. REMICADE [Suspect]
     Active Substance: INFLIXIMAB
     Indication: Product used for unknown indication
     Route: 042
  426. REMICADE [Suspect]
     Active Substance: INFLIXIMAB
     Route: 058
  427. REMICADE [Suspect]
     Active Substance: INFLIXIMAB
     Route: 065
  428. REMICADE [Suspect]
     Active Substance: INFLIXIMAB
     Route: 065
  429. REMICADE [Suspect]
     Active Substance: INFLIXIMAB
     Route: 058
  430. REMICADE [Suspect]
     Active Substance: INFLIXIMAB
     Route: 065
  431. RIBOFLAVIN [Suspect]
     Active Substance: RIBOFLAVIN
     Indication: Product used for unknown indication
     Route: 065
  432. RIBOFLAVIN [Suspect]
     Active Substance: RIBOFLAVIN
     Route: 065
  433. SULFASALAZINE [Suspect]
     Active Substance: SULFASALAZINE
     Indication: Rheumatoid arthritis
     Route: 065
  434. SIMPONI [Suspect]
     Active Substance: GOLIMUMAB
     Indication: Prostatic specific antigen
     Route: 058
  435. SIMPONI [Suspect]
     Active Substance: GOLIMUMAB
     Indication: Rheumatoid arthritis
     Route: 065
  436. SIMPONI [Suspect]
     Active Substance: GOLIMUMAB
     Route: 065
  437. SIMPONI [Suspect]
     Active Substance: GOLIMUMAB
     Route: 065
  438. SIRUKUMAB [Suspect]
     Active Substance: SIRUKUMAB
     Indication: Product used for unknown indication
     Route: 065
  439. SIRUKUMAB [Suspect]
     Active Substance: SIRUKUMAB
     Route: 065
  440. SIRUKUMAB [Suspect]
     Active Substance: SIRUKUMAB
     Route: 065
  441. SIRUKUMAB [Suspect]
     Active Substance: SIRUKUMAB
     Route: 065
  442. GOLD SODIUM THIOMALATE [Suspect]
     Active Substance: GOLD SODIUM THIOMALATE
     Indication: Product used for unknown indication
     Route: 065
  443. GOLD SODIUM THIOMALATE [Suspect]
     Active Substance: GOLD SODIUM THIOMALATE
     Route: 065
  444. STELARA [Suspect]
     Active Substance: USTEKINUMAB
     Indication: Product used for unknown indication
     Route: 065
  445. SULFASALAZINE [Suspect]
     Active Substance: SULFASALAZINE
     Indication: Product used for unknown indication
     Route: 065
  446. SULFASALAZINE [Suspect]
     Active Substance: SULFASALAZINE
     Indication: Product used for unknown indication
     Route: 065
  447. TETRACYCLINE HYDROCHLORIDE [Suspect]
     Active Substance: TETRACYCLINE HYDROCHLORIDE
     Indication: Rheumatoid arthritis
     Route: 065
  448. TOFACITINIB [Suspect]
     Active Substance: TOFACITINIB
     Indication: Product used for unknown indication
     Dosage: 10 MG, QD
     Route: 065
  449. TOFACITINIB CITRATE [Suspect]
     Active Substance: TOFACITINIB CITRATE
     Dosage: 10 MG, QD
     Route: 048
  450. TOFACITINIB CITRATE [Suspect]
     Active Substance: TOFACITINIB CITRATE
     Indication: Rheumatoid arthritis
     Dosage: 10 MG, QD
     Route: 065
  451. TOPIRAMATE [Suspect]
     Active Substance: TOPIRAMATE
     Dosage: 25 MG, QD
     Route: 065
  452. TOPIRAMATE [Suspect]
     Active Substance: TOPIRAMATE
     Dosage: 25 MG, QD
     Route: 065
  453. TOPIRAMATE [Suspect]
     Active Substance: TOPIRAMATE
     Route: 065
  454. TOPIRAMATE [Suspect]
     Active Substance: TOPIRAMATE
     Dosage: 3 MG, QD
     Route: 065
  455. TOPIRAMATE [Suspect]
     Active Substance: TOPIRAMATE
     Indication: Product used for unknown indication
     Route: 065
  456. TRAMADOL HYDROCHLORIDE [Suspect]
     Active Substance: TRAMADOL HYDROCHLORIDE
     Indication: Product used for unknown indication
     Route: 065
  457. TRIAMCINOLONE ACETONIDE [Suspect]
     Active Substance: TRIAMCINOLONE ACETONIDE
     Indication: Rheumatoid arthritis
     Route: 013
  458. VITAMIN C [Suspect]
     Active Substance: ASCORBIC ACID
     Indication: Product used for unknown indication
     Route: 065
  459. VOLTAREN [Suspect]
     Active Substance: DICLOFENAC SODIUM
     Indication: Rheumatoid arthritis
     Route: 058
  460. VOLTAREN [Suspect]
     Active Substance: DICLOFENAC SODIUM
     Indication: Product used for unknown indication
     Route: 065
  461. XELJANZ [Suspect]
     Active Substance: TOFACITINIB CITRATE
     Dosage: 10 MG, QD
     Route: 048
  462. XELJANZ [Suspect]
     Active Substance: TOFACITINIB CITRATE
     Route: 065
  463. XELJANZ [Suspect]
     Active Substance: TOFACITINIB CITRATE
     Dosage: 20 MG, QD
     Route: 048
  464. XELJANZ [Suspect]
     Active Substance: TOFACITINIB CITRATE
     Route: 048
  465. XELJANZ [Suspect]
     Active Substance: TOFACITINIB CITRATE
     Route: 065
  466. XELJANZ [Suspect]
     Active Substance: TOFACITINIB CITRATE
     Route: 065
  467. XELJANZ [Suspect]
     Active Substance: TOFACITINIB CITRATE
     Route: 065
  468. XELJANZ [Suspect]
     Active Substance: TOFACITINIB CITRATE
     Route: 065
  469. XELJANZ [Suspect]
     Active Substance: TOFACITINIB CITRATE
     Indication: Product used for unknown indication
     Route: 065
  470. ZINC [Suspect]
     Active Substance: ZINC
     Indication: Product used for unknown indication
     Route: 042

REACTIONS (10)
  - Alopecia [Fatal]
  - Hepatic enzyme increased [Fatal]
  - Hepatitis [Fatal]
  - Hypercholesterolaemia [Fatal]
  - Hypersensitivity [Fatal]
  - Hypertension [Fatal]
  - Hypoaesthesia [Fatal]
  - Ill-defined disorder [Fatal]
  - Impaired healing [Fatal]
  - Inflammation [Fatal]
